FAERS Safety Report 4422584-X (Version None)
Quarter: 2004Q3

REPORT INFORMATION
  Report Type: 
  Country: None (occurrence: None)
  Receive Date: 20040810
  Receipt Date: 20040730
  Transmission Date: 20050211
  Serious: Yes (Other)
  Sender: FDA-Public Use
  Company Number: US-JNJFOC-20040306279

PATIENT
  Sex: Female

DRUGS (6)
  1. DURAGESIC [Suspect]
     Route: 062
     Dates: start: 20040219, end: 20040318
  2. LORTAB [Concomitant]
     Route: 049
  3. LORTAB [Concomitant]
     Route: 049
  4. OGEN [Concomitant]
     Route: 049
  5. PAXIL [Concomitant]
     Route: 049
  6. SYNTHROID [Concomitant]
     Route: 049

REACTIONS (2)
  - DIARRHOEA [None]
  - SUICIDAL IDEATION [None]
